FAERS Safety Report 4819611-4 (Version None)
Quarter: 2005Q4

REPORT INFORMATION
  Report Type: 
  Country: None (occurrence: None)
  Receive Date: 20051102
  Receipt Date: 20051102
  Transmission Date: 20060501
  Serious: Yes (Other)
  Sender: FDA-Public Use
  Company Number: None

PATIENT
  Age: 75 Year
  Sex: Male
  Weight: 75.7507 kg

DRUGS (4)
  1. TAXOTERE [Suspect]
     Indication: METASTATIC CARCINOMA OF THE BLADDER
     Dosage: 75MG/M2
     Dates: start: 20050912
  2. GLEEVEC [Suspect]
     Dosage: 600 MG
     Dates: start: 20050908, end: 20050913
  3. AVALIDE [Concomitant]
  4. NASONEX [Concomitant]

REACTIONS (3)
  - BLOOD DISORDER [None]
  - NEUTROPHIL COUNT DECREASED [None]
  - WHITE BLOOD CELL COUNT DECREASED [None]
